FAERS Safety Report 8019340-2 (Version None)
Quarter: 2012Q1

REPORT INFORMATION
  Report Type: 
  Country: None (occurrence: None)
  Receive Date: 20120103
  Receipt Date: 20111223
  Transmission Date: 20120608
  Serious: Yes (Hospitalization)
  Sender: FDA-Public Use
  Company Number: US-ACTELION-A-US2011-58739

PATIENT

DRUGS (7)
  1. CALCIUM CHANNEL BLOCKERS [Concomitant]
  2. ZOCOR [Concomitant]
  3. EPOPROSTENOL SODIUM [Suspect]
     Indication: PULMONARY ARTERIAL HYPERTENSION
     Dosage: 7 NG/KG, PER MIN
     Route: 042
     Dates: start: 20111115
  4. SILDENAFIL [Concomitant]
  5. COUMADIN [Concomitant]
  6. TRACLEER [Suspect]
     Indication: PULMONARY ARTERIAL HYPERTENSION
     Dosage: UNK
     Route: 048
     Dates: start: 20110909
  7. ASPIRIN [Concomitant]

REACTIONS (8)
  - PRURITUS [None]
  - LIVER FUNCTION TEST ABNORMAL [None]
  - FLATULENCE [None]
  - RENAL IMPAIRMENT [None]
  - PAIN [None]
  - RESPIRATORY FAILURE [None]
  - PYREXIA [None]
  - DECREASED APPETITE [None]
